FAERS Safety Report 9213273 (Version 2)
Quarter: 2013Q4

REPORT INFORMATION
  Report Type: Spontaneous
  Country: US (occurrence: US)
  Receive Date: 20130405
  Receipt Date: 20131106
  Transmission Date: 20140711
  Serious: Yes (Hospitalization)
  Sender: FDA-Public Use
  Company Number: US-BAYER-2013-042083

PATIENT
  Age: 31 Year
  Sex: Female
  Weight: 63.49 kg

DRUGS (5)
  1. MIRENA [Suspect]
     Indication: CONTRACEPTION
     Dosage: 20 MCG/24HR, CONT
     Route: 015
     Dates: start: 20100722, end: 20130305
  2. DIAZEPAM [Concomitant]
     Dosage: 5 MG, UNK
  3. TORADOL [Concomitant]
  4. LOESTRIN FE 1/20 [Concomitant]
  5. ADVIL [Concomitant]
     Indication: ABDOMINAL PAIN

REACTIONS (13)
  - Uterine perforation [None]
  - Abdominal pain lower [None]
  - Menorrhagia [None]
  - Dyspareunia [None]
  - Injury [None]
  - Pain [None]
  - Emotional distress [None]
  - Pain [None]
  - Psychological trauma [None]
  - Depression [None]
  - Anxiety [None]
  - Sexual dysfunction [None]
  - Device failure [None]
